FAERS Safety Report 19172650 (Version 1)
Quarter: 2021Q2

REPORT INFORMATION
  Report Type: Other
  Country: PL (occurrence: PL)
  Receive Date: 20210423
  Receipt Date: 20210423
  Transmission Date: 20210717
  Serious: Yes (Other)
  Sender: FDA-Public Use
  Company Number: PL-CELLTRION INC.-2021PL005453

PATIENT

DRUGS (5)
  1. KADCYLA [Suspect]
     Active Substance: ADO-TRASTUZUMAB EMTANSINE
     Indication: HER2 POSITIVE BREAST CANCER
     Dosage: 2ND LINE OF TREATMENT
     Route: 065
     Dates: start: 20200303
  2. PREGABALIN. [Concomitant]
     Active Substance: PREGABALIN
     Dosage: 75 MG, DAILY
  3. PERTUZUMAB. [Suspect]
     Active Substance: PERTUZUMAB
     Indication: HER2 POSITIVE BREAST CANCER
     Dosage: UNK
     Route: 065
     Dates: start: 20190612, end: 20200221
  4. TRASTUZUMAB (UNKNOWN) [Suspect]
     Active Substance: TRASTUZUMAB
     Indication: HER2 POSITIVE BREAST CANCER
     Dosage: UNK
     Route: 065
     Dates: start: 20190612, end: 20200221
  5. DOCETAXEL. [Suspect]
     Active Substance: DOCETAXEL
     Indication: HER2 POSITIVE BREAST CANCER
     Dosage: UNK
     Route: 065
     Dates: start: 20190612, end: 20200221

REACTIONS (5)
  - Nail discolouration [Unknown]
  - Paraesthesia [Unknown]
  - Bone pain [Unknown]
  - Neutropenia [Unknown]
  - Arthralgia [Unknown]
